FAERS Safety Report 24748115 (Version 1)
Quarter: 2024Q4

REPORT INFORMATION
  Report Type: Report from Study
  Country: US (occurrence: US)
  Receive Date: 20241218
  Receipt Date: 20241218
  Transmission Date: 20250115
  Serious: No
  Sender: SAGE
  Company Number: US-SAGE-2024SAGE000119

PATIENT

DRUGS (1)
  1. ZULRESSO [Suspect]
     Active Substance: BREXANOLONE
     Indication: Seizure
     Dosage: UNK
     Route: 042

REACTIONS (2)
  - Off label use [Unknown]
  - Off label use [Unknown]
